FAERS Safety Report 7032272-1 (Version None)
Quarter: 2010Q4

REPORT INFORMATION
  Report Type: 
  Country: None (occurrence: None)
  Receive Date: 20101007
  Receipt Date: 20100420
  Transmission Date: 20110411
  Serious: Yes (Hospitalization)
  Sender: FDA-Public Use
  Company Number: DE-BRISTOL-MYERS SQUIBB COMPANY-15073828

PATIENT
  Age: 58 Year
  Sex: Male
  Weight: 61 kg

DRUGS (4)
  1. CETUXIMAB [Suspect]
     Indication: NON-SMALL CELL LUNG CANCER
     Dosage: STRENGTH=5 MG/ML RECENT INFUSION ON 7APR10 NO OF INFUSION=4
     Route: 042
     Dates: start: 20100317, end: 20100407
  2. CISPLATIN [Suspect]
     Indication: NON-SMALL CELL LUNG CANCER
     Dosage: RECENT INFUSION ON 7APR10 (2ND INF:75 MG/M2) ON DAY1 AND DAY8 OF EACH 3WEEK CYCLE
     Route: 042
     Dates: start: 20100317, end: 20100407
  3. CILENGITIDE [Suspect]
     Indication: NON-SMALL CELL LUNG CANCER
     Dosage: RECENT INFUSION ON 7APR10, 2001 MG, 4TH INFUSION
     Route: 042
     Dates: start: 20100317, end: 20100407
  4. GEMCITABINE [Suspect]
     Indication: NON-SMALL CELL LUNG CANCER
     Dosage: RECENT INFUSION ON 7APR10, 1250 MG/M2, 3RD INFUSION ON DAY1 AND DAY8 OF EACH 3WEEK CYCLE
     Route: 042
     Dates: start: 20100317, end: 20100407

REACTIONS (1)
  - THROMBOSIS [None]
